FAERS Safety Report 9733679 (Version 3)
Quarter: 2013Q4

REPORT INFORMATION
  Report Type: Spontaneous
  Country: IT (occurrence: IT)
  Receive Date: 20131205
  Receipt Date: 20131223
  Transmission Date: 20140711
  Serious: Yes (Hospitalization)
  Sender: FDA-Public Use
  Company Number: PHHY2013IT136910

PATIENT
  Age: 23 Year
  Sex: Female

DRUGS (6)
  1. TOLEP [Suspect]
     Indication: SUICIDE ATTEMPT
     Dosage: 600 MG, UNK
     Route: 048
     Dates: start: 20130727
  2. TOLEP [Suspect]
     Dosage: 6 DF (600 MG), TOTAL
     Route: 048
     Dates: start: 20131021, end: 20131021
  3. PAROXETINE-BC [Suspect]
     Indication: SUICIDE ATTEMPT
     Dosage: 20 MG, UNK
     Route: 048
     Dates: start: 20130724
  4. PAROXETINE-BC [Suspect]
     Dosage: 10 DF(200 MG), TOTAL
     Route: 048
     Dates: start: 20131021, end: 20131021
  5. DIAZEPAM [Suspect]
     Indication: SUICIDE ATTEMPT
     Dosage: 20 GTT, UNK
     Route: 048
     Dates: start: 20130724
  6. DIAZEPAM [Suspect]
     Dosage: 20 GTT, UNK
     Route: 048
     Dates: start: 20131021, end: 20131021

REACTIONS (3)
  - Sopor [Recovered/Resolved]
  - Drug abuse [Recovered/Resolved]
  - Suicide attempt [Recovered/Resolved]
